FAERS Safety Report 18745571 (Version 1)
Quarter: 2021Q1

REPORT INFORMATION
  Report Type: Spontaneous
  Country: US (occurrence: US)
  Receive Date: 20210115
  Receipt Date: 20210115
  Transmission Date: 20210419
  Serious: Yes (Hospitalization, Other)
  Sender: FDA-Public Use
  Company Number: US-GW PHARMA-202012USGW04393

PATIENT

DRUGS (20)
  1. ROBINUL [Concomitant]
     Active Substance: GLYCOPYRROLATE
     Indication: SECRETION DISCHARGE
  2. PEPTAMEN JUNIOR [Concomitant]
     Active Substance: DIETARY SUPPLEMENT
     Indication: SLEEP DISORDER
     Dosage: 4 DOSAGE FORM (CAN), QD
  3. ALBUTEROL [SALBUTAMOL] [Concomitant]
     Active Substance: ALBUTEROL
     Indication: WHEEZING
     Dosage: 2.5 MILLIGRAM, PRN (EVERY 4 HOUR AS NEEDED)
     Route: 065
  4. KLONOPIN [Concomitant]
     Active Substance: CLONAZEPAM
     Dosage: 0.25 MILLIGRAM, QD (NIGHTLY); STRENGTH 0.25 MILLIGRAM
     Route: 065
  5. OMEPRAZOLE;SODIUM BICARBONATE [Concomitant]
     Active Substance: OMEPRAZOLE\SODIUM BICARBONATE
     Indication: PRODUCT USED FOR UNKNOWN INDICATION
     Dosage: 4 MILLILITER (8 MILLIGRAM), BID
     Route: 065
  6. KEFLEX [Concomitant]
     Active Substance: CEPHALEXIN
     Indication: INFECTION
     Dosage: UNK
     Route: 048
     Dates: end: 20201204
  7. NEURONTIN [Concomitant]
     Active Substance: GABAPENTIN
     Indication: PRODUCT USED FOR UNKNOWN INDICATION
     Dosage: 300 MILLIGRAM, TID
     Route: 048
  8. EPIDIOLEX [Suspect]
     Active Substance: CANNABIDIOL
     Indication: EPILEPSY
     Dosage: 150 MILLIGRAM, BID
     Dates: start: 201910
  9. CHOLECALCIFEROL [Concomitant]
     Active Substance: CHOLECALCIFEROL
     Indication: PRODUCT USED FOR UNKNOWN INDICATION
     Dosage: 1000UNITS, QD
  10. PROBIOTIC 10 [Concomitant]
     Active Substance: DIETARY SUPPLEMENT\PROBIOTICS
     Indication: PRODUCT USED FOR UNKNOWN INDICATION
     Dosage: 1 DOSAGE FORM (CAPLET), QD
  11. KLONOPIN [Concomitant]
     Active Substance: CLONAZEPAM
     Indication: SEIZURE
     Dosage: 0.5 MILLIGRAM, PRN; STRENGTH: 0.5 MILLIGRAM
     Route: 065
  12. ALBUTEROL [SALBUTAMOL] [Concomitant]
     Active Substance: ALBUTEROL
     Indication: DYSPNOEA
  13. VIVELLE?DOT [Concomitant]
     Active Substance: ESTRADIOL
     Indication: SEIZURE
     Dosage: 1 PATCH ON SKIN AND WEAR CONTINUOUSLY CHANGING TWICE WEEKLY, CYCLE OFF THE PATCH EVERY FOURTH WEEK
     Route: 062
  14. FLONASE [Concomitant]
     Active Substance: FLUTICASONE PROPIONATE
     Indication: SEIZURE
     Dosage: 1 DOSAGE FORM (SPRAY), QD (EACH NOSTRIL)
     Route: 045
  15. ROBINUL [Concomitant]
     Active Substance: GLYCOPYRROLATE
     Indication: DROOLING
     Dosage: 0.5 MILLIGRAM, PRN (TID)
  16. MELATONIN [Concomitant]
     Active Substance: MELATONIN
     Indication: SLEEP DISORDER
     Dosage: 3 MILLIGRAM, PRN (NIGHTLY)
  17. CETRIZINE [Concomitant]
     Active Substance: CETIRIZINE HYDROCHLORIDE
     Indication: PRODUCT USED FOR UNKNOWN INDICATION
     Dosage: 10 MILLIGRAM, QD
  18. DIASTAT ACUDIAL [Concomitant]
     Active Substance: DIAZEPAM
     Indication: SEIZURE
     Dosage: 7.5 MILLIGRAM, PRN (SEIZURE LASTING GREATER THAN 5 MIN); FORMULATION: RECTAL KIT (5?7, 5?10 MG)
     Route: 054
  19. PYRIDOXAL 5 PHOSPHATE [Concomitant]
     Active Substance: PYRIDOXAL PHOSPHATE ANHYDROUS
     Indication: PRODUCT USED FOR UNKNOWN INDICATION
     Dosage: 100 MG BID/ 200 MG QD
  20. VALIUM [Concomitant]
     Active Substance: DIAZEPAM
     Indication: PAIN
     Dosage: UNK
     Route: 065
     Dates: end: 20201204

REACTIONS (11)
  - Seizure [Recovered/Resolved]
  - Wound secretion [Unknown]
  - Wound infection pseudomonas [Recovered/Resolved]
  - Hyperhidrosis [Unknown]
  - Urinary tract infection pseudomonal [Unknown]
  - Pain [Unknown]
  - Discomfort [Unknown]
  - Hypotension [Unknown]
  - Spinal fusion surgery [Recovered/Resolved]
  - Lethargy [Unknown]
  - Citrobacter infection [Recovered/Resolved]

NARRATIVE: CASE EVENT DATE: 20201110
